FAERS Safety Report 5597636-1 (Version None)
Quarter: 2008Q1

REPORT INFORMATION
  Report Type: 
  Country: None (occurrence: None)
  Receive Date: 20080121
  Receipt Date: 20080108
  Transmission Date: 20080703
  Serious: Yes (Hospitalization)
  Sender: FDA-Public Use
  Company Number: US-ELI_LILLY_AND_COMPANY-US200801001522

PATIENT
  Age: 82 Year
  Sex: Male

DRUGS (3)
  1. CYMBALTA [Suspect]
     Indication: NEURALGIA
     Dosage: 30 MG, DAILY (1/D)
  2. TRAMADOL HCL [Concomitant]
     Indication: PAIN
     Dosage: 1 D/F, 2/D
  3. LIDOCAINE [Concomitant]
     Route: 061

REACTIONS (3)
  - DIZZINESS [None]
  - DRUG INTERACTION [None]
  - FALL [None]
